FAERS Safety Report 5316907-7 (Version None)
Quarter: 2007Q2

REPORT INFORMATION
  Report Type: 
  Country: None (occurrence: None)
  Receive Date: 20070504
  Receipt Date: 20070427
  Transmission Date: 20071010
  Serious: Yes (Hospitalization)
  Sender: FDA-Public Use
  Company Number: FR-GLAXOSMITHKLINE-B0468948A

PATIENT
  Age: 74 Year
  Sex: Female
  Weight: 64 kg

DRUGS (13)
  1. DEROXAT [Suspect]
     Indication: MAJOR DEPRESSION
     Dosage: 1UNIT PER DAY
     Route: 048
     Dates: start: 20061108, end: 20061110
  2. ALDACTAZIDE [Suspect]
     Dosage: .5UNIT PER DAY
     Route: 048
     Dates: end: 20061116
  3. DIAMICRON [Suspect]
     Dosage: 40MG PER DAY
     Route: 048
     Dates: end: 20061116
  4. STABLON [Suspect]
     Indication: MAJOR DEPRESSION
     Dosage: 1UNIT PER DAY
     Route: 048
     Dates: start: 20061110, end: 20061113
  5. IRBESARTAN [Suspect]
     Indication: ESSENTIAL HYPERTENSION
     Dosage: .5UNIT TWICE PER DAY
     Route: 048
     Dates: end: 20061116
  6. SIMVASTATIN [Suspect]
     Dosage: 1UNIT TWICE PER DAY
     Route: 048
     Dates: end: 20061116
  7. LEXOMIL [Concomitant]
     Dates: start: 20050101, end: 20061120
  8. TRIVASTAL [Concomitant]
     Dates: start: 20040701, end: 20061116
  9. MODOPAR [Concomitant]
     Dates: start: 20041201
  10. ARTANE [Concomitant]
     Dates: start: 20050201, end: 20061116
  11. DIFFU K [Concomitant]
     Dates: end: 20061116
  12. TANAKAN [Concomitant]
     Dates: end: 20061116
  13. MIOREL [Concomitant]
     Dates: end: 20061116

REACTIONS (6)
  - ATRIAL FIBRILLATION [None]
  - DEHYDRATION [None]
  - DIARRHOEA [None]
  - HYPONATRAEMIA [None]
  - HYPOVOLAEMIA [None]
  - VOMITING [None]
